FAERS Safety Report 5489064-4 (Version None)
Quarter: 2007Q4

REPORT INFORMATION
  Report Type: 
  Country: None (occurrence: None)
  Receive Date: 20071018
  Receipt Date: 20071009
  Transmission Date: 20080405
  Serious: Yes (Hospitalization)
  Sender: FDA-Public Use
  Company Number: PHBS2007BR16865

PATIENT
  Age: 83 Year
  Sex: Female
  Weight: 82 kg

DRUGS (4)
  1. EXELON [Suspect]
     Indication: DEMENTIA ALZHEIMER'S TYPE
     Dosage: 6 MG, QD
     Route: 048
  2. RIVOTRIL [Concomitant]
     Dosage: 15 MG, QD
     Route: 048
  3. PAROXETINE [Concomitant]
     Indication: DEMENTIA ALZHEIMER'S TYPE
     Dosage: UNK, QD
     Route: 048
  4. INSULIN [Concomitant]
     Indication: DIABETES MELLITUS
     Dosage: UNK, QD
     Route: 042

REACTIONS (3)
  - BLOOD PRESSURE FLUCTUATION [None]
  - DIARRHOEA [None]
  - VOMITING [None]
